FAERS Safety Report 7576143-0 (Version None)
Quarter: 2011Q2

REPORT INFORMATION
  Report Type: 
  Country: None (occurrence: None)
  Receive Date: 20110623
  Receipt Date: 20110623
  Transmission Date: 20111010
  Serious: Yes (Other)
  Sender: FDA-Public Use
  Company Number: None

PATIENT
  Sex: Female
  Weight: 54.4316 kg

DRUGS (3)
  1. FLECAINIDE ACETATE [Concomitant]
  2. METOPROLOL SUCCINATE [Concomitant]
  3. PRADAXA [Suspect]
     Indication: ATRIAL FIBRILLATION
     Dosage: 150 MG TWO DAILY PO
     Route: 048
     Dates: start: 20110315, end: 20110613

REACTIONS (2)
  - ANORECTAL DISCOMFORT [None]
  - HAEMORRHOIDS [None]
